FAERS Safety Report 8162844-2 (Version None)
Quarter: 2012Q1

REPORT INFORMATION
  Report Type: 
  Country: None (occurrence: None)
  Receive Date: 20120224
  Receipt Date: 20101112
  Transmission Date: 20120608
  Serious: Yes (Hospitalization)
  Sender: FDA-Public Use
  Company Number: AR-AMGEN-ARGCT2010005334

PATIENT
  Age: 48 Year
  Sex: Female
  Weight: 78 kg

DRUGS (2)
  1. LEFLUNOMIDE [Concomitant]
     Dosage: UNK
  2. ENBREL [Suspect]
     Indication: RHEUMATOID ARTHRITIS
     Dosage: 50 MG, QWK
     Route: 058
     Dates: start: 20100201, end: 20100701

REACTIONS (1)
  - UTERINE LEIOMYOMA [None]
